FAERS Safety Report 4802825-7 (Version None)
Quarter: 2005Q4

REPORT INFORMATION
  Report Type: 
  Country: None (occurrence: None)
  Receive Date: 20051017
  Receipt Date: 20051017
  Transmission Date: 20060501
  Serious: Yes (Death, Hospitalization)
  Sender: FDA-Public Use
  Company Number: None

PATIENT
  Age: 73 Year
  Sex: Female

DRUGS (1)
  1. REOPRO [Suspect]
     Indication: ANGIOPLASTY
     Dates: start: 20050317

REACTIONS (2)
  - COAGULOPATHY [None]
  - CORONARY ARTERY SURGERY [None]
